FAERS Safety Report 19901273 (Version 20)
Quarter: 2023Q2

REPORT INFORMATION
  Report Type: Report from Study
  Country: CN (occurrence: None)
  Receive Date: 20210930
  Receipt Date: 20230509
  Transmission Date: 20230721
  Serious: Yes (Hospitalization)
  Sender: FDA-Public Use
  Company Number: CN-ROCHE-2922246

PATIENT
  Age: 73 Year
  Sex: Female
  Weight: 69 kg

DRUGS (52)
  1. PLACEBO [Suspect]
     Active Substance: UNSPECIFIED INGREDIENT
     Indication: Non-small cell lung cancer stage IV
     Dosage: START DATE OF MOST RECENT DOSE OF STUDY DRUG PRIOR TO AE AND SAE 16/SEP/2021
     Route: 041
     Dates: start: 20210916
  2. CARBOPLATIN [Suspect]
     Active Substance: CARBOPLATIN
     Indication: Non-small cell lung cancer stage IV
     Dosage: DOSE LAST STUDY DRUG ADMIN PRIOR AE AND SAE 360 MG?START DATE OF MOST RECENT DOSE OF STUDY DRUG PRIO
     Route: 042
     Dates: start: 20210916
  3. BEVACIZUMAB [Suspect]
     Active Substance: BEVACIZUMAB
     Indication: Non-small cell lung cancer stage IV
     Dosage: DOSE OF STUDY DRUG FIRST ADMINISTERED 1035 MG?DOSE LAST STUDY DRUG ADMIN PRIOR AE AND SAE: 1035 MG.
     Route: 042
     Dates: start: 20210916
  4. PEMETREXED [Suspect]
     Active Substance: PEMETREXED
     Indication: Non-small cell lung cancer stage IV
     Dosage: START DATE OF MOST RECENT DOSE OF STUDY DRUG PRIOR TO AE AND SAE 16/SEP/2021.?DOSE LAST STUDY DRUG A
     Route: 042
     Dates: start: 20210916
  5. AUMOLERTINIB [Concomitant]
     Active Substance: AUMOLERTINIB
     Dates: start: 20201028, end: 20210829
  6. RABEPRAZOLE SODIUM [Concomitant]
     Active Substance: RABEPRAZOLE SODIUM
     Indication: Prophylaxis
     Dates: start: 20210915, end: 20220304
  7. RABEPRAZOLE SODIUM [Concomitant]
     Active Substance: RABEPRAZOLE SODIUM
     Dates: start: 20211007, end: 20211015
  8. RABEPRAZOLE SODIUM [Concomitant]
     Active Substance: RABEPRAZOLE SODIUM
     Dates: start: 20211028, end: 20211105
  9. RABEPRAZOLE SODIUM [Concomitant]
     Active Substance: RABEPRAZOLE SODIUM
     Dates: start: 20210915, end: 20220304
  10. METHIONINE AND VITAMIN B1 [Concomitant]
     Indication: Prophylaxis
     Dates: start: 20210915, end: 20220304
  11. METHIONINE AND VITAMIN B1 [Concomitant]
     Dates: start: 20211007, end: 20211015
  12. METHIONINE AND VITAMIN B1 [Concomitant]
     Dates: start: 20210915, end: 20220304
  13. DOLASETRON MESYLATE [Concomitant]
     Active Substance: DOLASETRON MESYLATE
     Indication: Prophylaxis
     Dates: start: 20210916, end: 20211225
  14. DOLASETRON MESYLATE [Concomitant]
     Active Substance: DOLASETRON MESYLATE
     Dates: start: 20211008, end: 20211012
  15. DOLASETRON MESYLATE [Concomitant]
     Active Substance: DOLASETRON MESYLATE
     Dates: start: 20211029, end: 20211031
  16. DOLASETRON MESYLATE [Concomitant]
     Active Substance: DOLASETRON MESYLATE
     Dates: start: 20210916, end: 20211225
  17. METOCLOPRAMIDE [Concomitant]
     Active Substance: METOCLOPRAMIDE
     Indication: Prophylaxis
     Dates: start: 20210916, end: 20220304
  18. METOCLOPRAMIDE [Concomitant]
     Active Substance: METOCLOPRAMIDE
     Dates: start: 20211008, end: 20211015
  19. METOCLOPRAMIDE [Concomitant]
     Active Substance: METOCLOPRAMIDE
     Dates: start: 20210916, end: 20220304
  20. DEXAMETHASONE [Concomitant]
     Active Substance: DEXAMETHASONE
     Indication: Prophylaxis
     Route: 048
     Dates: start: 20210915, end: 20220115
  21. DEXAMETHASONE [Concomitant]
     Active Substance: DEXAMETHASONE
     Route: 048
     Dates: start: 20211007, end: 20211009
  22. DEXAMETHASONE [Concomitant]
     Active Substance: DEXAMETHASONE
     Route: 048
     Dates: start: 20211028, end: 20211030
  23. DEXAMETHASONE [Concomitant]
     Active Substance: DEXAMETHASONE
     Route: 048
     Dates: start: 20210915, end: 20220115
  24. DEXAMETHASONE [Concomitant]
     Active Substance: DEXAMETHASONE
     Route: 042
     Dates: start: 20210920, end: 20210920
  25. DEXAMETHASONE [Concomitant]
     Active Substance: DEXAMETHASONE
     Dates: start: 20211110, end: 20211110
  26. IBANDRONATE SODIUM [Concomitant]
     Active Substance: IBANDRONATE SODIUM
     Indication: Metastases to bone
     Dates: start: 20210917, end: 20210917
  27. IBANDRONATE SODIUM [Concomitant]
     Active Substance: IBANDRONATE SODIUM
     Indication: Bone pain
     Dates: start: 20211011, end: 20211011
  28. IBANDRONATE SODIUM [Concomitant]
     Active Substance: IBANDRONATE SODIUM
     Dates: start: 20211107, end: 20211107
  29. IBANDRONATE SODIUM [Concomitant]
     Active Substance: IBANDRONATE SODIUM
     Dates: start: 20210916, end: 20210916
  30. PEGYLATED RECOMBINANT HUMAN GRANULOCYTE COLONY-STIMULATING FACTOR [Concomitant]
     Dates: start: 20211012, end: 20211012
  31. ERYTHROPOIETIN [Concomitant]
     Active Substance: ERYTHROPOIETIN
     Indication: Anaemia
     Dates: start: 20211110, end: 20211113
  32. ERYTHROPOIETIN [Concomitant]
     Active Substance: ERYTHROPOIETIN
     Dates: start: 20211108, end: 20211108
  33. ERYTHROPOIETIN [Concomitant]
     Active Substance: ERYTHROPOIETIN
     Dates: start: 20211110, end: 20211113
  34. GLUTATHIONE [Concomitant]
     Active Substance: GLUTATHIONE
     Dates: start: 20211028, end: 20211105
  35. OPRELVEKIN [Concomitant]
     Active Substance: OPRELVEKIN
     Dates: start: 20211103, end: 20211103
  36. OPRELVEKIN [Concomitant]
     Active Substance: OPRELVEKIN
     Dates: start: 20211103, end: 20211105
  37. ESTAZOLAM [Concomitant]
     Active Substance: ESTAZOLAM
     Indication: Insomnia
     Dates: start: 20210916, end: 20220922
  38. OXYCODONE HYDROCHLORIDE [Concomitant]
     Active Substance: OXYCODONE HYDROCHLORIDE
     Dates: start: 20210916, end: 20220926
  39. MEDROXYPROGESTERONE ACETATE [Concomitant]
     Active Substance: MEDROXYPROGESTERONE ACETATE
     Dates: start: 20211011
  40. REDUCED GLUTATHIONE [Concomitant]
     Dates: start: 20210926, end: 20210928
  41. APREPITANT [Concomitant]
     Active Substance: APREPITANT
     Dates: start: 20211102
  42. CELEBREX [Concomitant]
     Active Substance: CELECOXIB
     Indication: Analgesic therapy
     Dates: start: 20211105
  43. MONTMORILLONITE [Concomitant]
     Active Substance: MONTMORILLONITE
     Dates: start: 20210922
  44. ELECTROLYTES NOS [Concomitant]
     Active Substance: ELECTROLYTES NOS
     Dates: start: 20211007, end: 20211009
  45. PROMETHAZINE HYDROCHLORIDE [Concomitant]
     Active Substance: PROMETHAZINE HYDROCHLORIDE
     Dates: start: 20211110, end: 20211110
  46. INSULIN NOS [Concomitant]
     Active Substance: INSULIN NOS
     Indication: Blood glucose decreased
     Dates: start: 20211028, end: 20211029
  47. AMINO ACIDS [Concomitant]
     Active Substance: AMINO ACIDS
     Indication: Hypoproteinaemia
     Dates: start: 20210920, end: 20220210
  48. AMINO ACIDS [Concomitant]
     Active Substance: AMINO ACIDS
     Dates: start: 20210920, end: 20220210
  49. MULTI-TRACE ELEMENTS [Concomitant]
     Dates: start: 20210926, end: 20211001
  50. THYMALFASIN [Concomitant]
     Active Substance: THYMALFASIN
     Dates: start: 20210926, end: 20210926
  51. WHOLE PROTEIN ENTERAL NUTRITIONAL SUPPLEMENTS [Concomitant]
     Dates: start: 20210922, end: 20210922
  52. MAGNESIUM ISOGLYCYRRHIZINATE [Concomitant]
     Active Substance: MAGNESIUM ISOGLYCYRRHIZINATE
     Dates: start: 20210926, end: 20210926

REACTIONS (1)
  - Myelosuppression [Recovered/Resolved]

NARRATIVE: CASE EVENT DATE: 20210925
